FAERS Safety Report 15147049 (Version 3)
Quarter: 2018Q3

REPORT INFORMATION
  Report Type: Spontaneous
  Country: DE (occurrence: DE)
  Receive Date: 20180716
  Receipt Date: 20180917
  Transmission Date: 20181010
  Serious: Yes (Other)
  Sender: FDA-Public Use
  Company Number: DE-BRISTOL-MYERS SQUIBB COMPANY-BMS-2018-064687

PATIENT
  Age: 56 Year
  Sex: Male

DRUGS (1)
  1. OPDIVO [Suspect]
     Active Substance: NIVOLUMAB
     Indication: TONGUE NEOPLASM MALIGNANT STAGE UNSPECIFIED
     Dosage: UNAVAILABLE
     Route: 065
     Dates: start: 20170515

REACTIONS (4)
  - Malignant neoplasm progression [Unknown]
  - Carotid sinus syndrome [Unknown]
  - Pneumonia [Unknown]
  - Syncope [Unknown]

NARRATIVE: CASE EVENT DATE: 201708
